FAERS Safety Report 4315032-1 (Version None)
Quarter: 2004Q1

REPORT INFORMATION
  Report Type: 
  Country: None (occurrence: None)
  Receive Date: 20040309
  Receipt Date: 20040225
  Transmission Date: 20041129
  Serious: Yes (Hospitalization)
  Sender: FDA-Public Use
  Company Number: US068107

PATIENT
  Age: 60 Year
  Sex: Male
  Weight: 83 kg

DRUGS (8)
  1. STEMGEN [Concomitant]
     Indication: PERIPHERAL BLOOD STEM CELL APHERESIS
     Dosage: 20 MCG/KG 1 IN 1 DAYS, SC
     Route: 058
     Dates: start: 20040108, end: 20040112
  2. NEUPOGEN [Suspect]
     Indication: PERIPHERAL BLOOD STEM CELL APHERESIS
     Dosage: 600 MCG, 1 IN 1 DAYS, SC
     Route: 058
     Dates: start: 20040108, end: 20040112
  3. FLUDARABINE PHOSPHATE [Concomitant]
  4. CYCLOPHOSPHAMIDE [Concomitant]
  5. DOXORUBICIN HCL [Concomitant]
  6. VINCRISTINE SULFATE [Concomitant]
  7. PREDNISONE [Concomitant]
  8. ETOPOSIDE [Concomitant]

REACTIONS (2)
  - LYMPHOCYTE MORPHOLOGY ABNORMAL [None]
  - WHITE BLOOD CELL COUNT INCREASED [None]
